FAERS Safety Report 12335747 (Version 1)
Quarter: 2016Q2

REPORT INFORMATION
  Report Type: Spontaneous
  Country: IN (occurrence: IN)
  Receive Date: 20160505
  Receipt Date: 20160505
  Transmission Date: 20160815
  Serious: Yes (Other)
  Sender: FDA-Public Use
  Company Number: IN-009507513-1605IND000873

PATIENT
  Age: 36 Year
  Sex: Male
  Weight: 71 kg

DRUGS (1)
  1. JANUMET [Suspect]
     Active Substance: METFORMIN HYDROCHLORIDE\SITAGLIPTIN PHOSPHATE
     Indication: DIABETES MELLITUS
     Dosage: 1 TABLET PER DAY
     Route: 048

REACTIONS (3)
  - Colon cancer [Not Recovered/Not Resolved]
  - Inappropriate schedule of drug administration [Unknown]
  - Hepatic cancer [Not Recovered/Not Resolved]
